FAERS Safety Report 5542369-0 (Version None)
Quarter: 2007Q4

REPORT INFORMATION
  Report Type: 
  Country: None (occurrence: None)
  Receive Date: 20071210
  Receipt Date: 20070122
  Transmission Date: 20080405
  Serious: No
  Sender: FDA-Public Use
  Company Number: US-AMGEN-KDL202138

PATIENT
  Sex: Female
  Weight: 81.7 kg

DRUGS (7)
  1. ENBREL [Suspect]
     Indication: PSORIASIS
     Dates: start: 20061101
  2. PROTONIX [Concomitant]
  3. CLARITIN [Concomitant]
  4. NASACORT [Concomitant]
  5. ALEVE [Concomitant]
     Route: 048
  6. GLUCOSAMINE [Concomitant]
  7. MIRCETTE [Concomitant]

REACTIONS (3)
  - FATIGUE [None]
  - INFLUENZA LIKE ILLNESS [None]
  - INJECTION SITE REACTION [None]
